FAERS Safety Report 19425962 (Version 1)
Quarter: 2021Q2

REPORT INFORMATION
  Report Type: Spontaneous
  Country: SI (occurrence: SI)
  Receive Date: 20210617
  Receipt Date: 20210617
  Transmission Date: 20210717
  Serious: Yes (Other)
  Sender: FDA-Public Use
  Company Number: SI-ACCORD-228281

PATIENT
  Age: 67 Year
  Sex: Male

DRUGS (10)
  1. SYNJARDY [Concomitant]
     Active Substance: EMPAGLIFLOZIN\METFORMIN HYDROCHLORIDE
  2. INSULIN [Concomitant]
     Active Substance: INSULIN NOS
     Dosage: ACCORDING TO THE SCHEME
  3. LATANOX [Concomitant]
  4. REGLAN [Concomitant]
     Active Substance: METOCLOPRAMIDE HYDROCHLORIDE
  5. CORYOL [Concomitant]
  6. ACETYLSALICYLIC ACID [Concomitant]
     Active Substance: ASPIRIN
  7. CISPLATIN ACCORD [Suspect]
     Active Substance: CISPLATIN
     Indication: BILIARY NEOPLASM
     Dosage: 1 MG / ML
     Route: 042
     Dates: start: 20201218, end: 20210317
  8. ANALGIN [Concomitant]
  9. EMOZUL [Concomitant]
     Active Substance: ESOMEPRAZOLE MAGNESIUM
  10. TORECAN [Concomitant]
     Active Substance: THIETHYLPERAZINE MALATE

REACTIONS (8)
  - Abscess [Recovered/Resolved]
  - Hypotension [Recovered/Resolved]
  - Bradycardia [Recovered/Resolved]
  - Nausea [Recovered/Resolved]
  - Off label use [Unknown]
  - Oxygen saturation decreased [Recovered/Resolved]
  - Urticaria [Recovered/Resolved]
  - Oedema peripheral [Recovered/Resolved]

NARRATIVE: CASE EVENT DATE: 20210317
